FAERS Safety Report 8624428-9 (Version None)
Quarter: 2012Q3

REPORT INFORMATION
  Report Type: 
  Country: None (occurrence: None)
  Receive Date: 20120827
  Receipt Date: 20120823
  Transmission Date: 20120928
  Serious: Yes (Other)
  Sender: FDA-Public Use
  Company Number: US-BAYER-2012-073016

PATIENT
  Sex: Male
  Weight: 93 kg

DRUGS (1)
  1. BETASERON [Suspect]
     Indication: MULTIPLE SCLEROSIS
     Dosage: UNK UNK, QOD
     Dates: start: 20100101, end: 20110301

REACTIONS (6)
  - SKIN BURNING SENSATION [None]
  - INJECTION SITE MASS [None]
  - DISCOMFORT [None]
  - SKIN DISCOLOURATION [None]
  - SCAR [None]
  - SKIN NECROSIS [None]
